FAERS Safety Report 5801564-3 (Version None)
Quarter: 2008Q2

REPORT INFORMATION
  Report Type: 
  Country: None (occurrence: None)
  Receive Date: 20080626
  Receipt Date: 20030908
  Transmission Date: 20081010
  Serious: Yes (Death)
  Sender: FDA-Public Use
  Company Number: 529536

PATIENT
  Age: 51 Year
  Sex: Female

DRUGS (5)
  1. CAPECITABINE (CAPECITABINE) [Suspect]
     Indication: COLORECTAL CANCER METASTATIC
     Dosage: 2000 MG/M2 2 PER DAY ORAL
     Route: 048
  2. ESTRADIOL [Concomitant]
  3. FUROSEMIDE [Concomitant]
  4. OXYCODONE HCL [Concomitant]
  5. WARFARIN SODIUM [Concomitant]

REACTIONS (1)
  - DISEASE PROGRESSION [None]
